FAERS Safety Report 8422379-6 (Version None)
Quarter: 2012Q2

REPORT INFORMATION
  Report Type: 
  Country: None (occurrence: None)
  Receive Date: 20120604
  Receipt Date: 20120523
  Transmission Date: 20120825
  Serious: Yes (Death)
  Sender: FDA-Public Use
  Company Number: B0805074A

PATIENT
  Sex: 0

DRUGS (5)
  1. GEMCITABINE [Suspect]
     Indication: NEOPLASM
  2. DOCETAXEL [Suspect]
     Indication: NEOPLASM
  3. CARBOPLATIN [Suspect]
     Indication: PRODUCT USED FOR UNKNOWN INDICATION
  4. BEVACIZUMAB (FORMULATION UNKNOWN) (BEVACIZUMAB) [Suspect]
     Indication: PRODUCT USED FOR UNKNOWN INDICATION
  5. MELPHALAN HYDROCHLORIDE [Suspect]
     Indication: NEOPLASM

REACTIONS (2)
  - TOXICITY TO VARIOUS AGENTS [None]
  - PNEUMONIA FUNGAL [None]
